FAERS Safety Report 8773765 (Version 1)
Quarter: 2012Q4

REPORT INFORMATION
  Report Type: 
  Country: US (occurrence: US)
  Receive Date: 20120907
  Receipt Date: 20120907
  Transmission Date: 20130627
  Serious: No
  Sender: FDA-Public Use
  Company Number: US-BAYER-2012-093024

PATIENT
  Age: 70 Year
  Sex: Female

DRUGS (7)
  1. ALEVE CAPLET/TABLET,MIDOL EXTENDED RELIEF CAPLET [Suspect]
     Indication: BACK PAIN
     Dosage: 2 DF, PRN
     Route: 048
     Dates: start: 2003
  2. DYAZIDE [Concomitant]
  3. PRAVACHOL [Concomitant]
  4. ATENOLOL [Concomitant]
  5. MULTIVITAMIN [Concomitant]
  6. GLUCOSAMINE/MSM [Concomitant]
  7. LOW DOSE (NON BAYER) [Concomitant]

REACTIONS (1)
  - No adverse event [None]
